FAERS Safety Report 6231981-1 (Version None)
Quarter: 2009Q2

REPORT INFORMATION
  Report Type: 
  Country: None (occurrence: None)
  Receive Date: 20090616
  Receipt Date: 20090604
  Transmission Date: 20091009
  Serious: Yes (Other)
  Sender: FDA-Public Use
  Company Number: US-PFIZER INC-2009168134

PATIENT
  Sex: Female
  Weight: 77.11 kg

DRUGS (3)
  1. DETROL LA [Suspect]
     Dosage: 4 MG, 1X/DAY
     Dates: start: 20090127, end: 20090208
  2. VITAMINS [Concomitant]
  3. ANTIHYPERTENSIVES [Concomitant]

REACTIONS (2)
  - BLOOD MAGNESIUM DECREASED [None]
  - PAIN [None]
